FAERS Safety Report 11455245 (Version 2)
Quarter: 2016Q2

REPORT INFORMATION
  Report Type: Report from Study
  Country: US (occurrence: US)
  Receive Date: 20150903
  Receipt Date: 20160503
  Transmission Date: 20160815
  Serious: No
  Sender: FDA-Public Use
  Company Number: US-AMGEN-USASP2015087774

PATIENT
  Age: 69 Year
  Sex: Female

DRUGS (1)
  1. ENBREL [Suspect]
     Active Substance: ETANERCEPT
     Indication: RHEUMATOID ARTHRITIS
     Dosage: 50 MG, QWK
     Route: 065
     Dates: start: 201001

REACTIONS (9)
  - Pain in extremity [Unknown]
  - Anxiety [Unknown]
  - Hyperhidrosis [Unknown]
  - Fear of injection [Unknown]
  - Pain [Unknown]
  - Gait disturbance [Unknown]
  - Blood pressure increased [Unknown]
  - Joint swelling [Unknown]
  - Mass [Unknown]
